FAERS Safety Report 9540938 (Version 1)
Quarter: 2013Q3

REPORT INFORMATION
  Report Type: Report from Study
  Country: US (occurrence: US)
  Receive Date: 20130921
  Receipt Date: 20130921
  Transmission Date: 20140515
  Serious: Yes (Hospitalization)
  Sender: FDA-Public Use
  Company Number: US-ROCHE-1273503

PATIENT
  Age: 82 Year
  Sex: 0

DRUGS (14)
  1. AVASTIN [Suspect]
     Indication: METASTASES TO LUNG
     Route: 065
  2. AVASTIN [Suspect]
     Indication: HEPATIC CANCER
  3. AVASTIN [Suspect]
     Indication: COLON CANCER
  4. XELODA [Suspect]
     Indication: PRODUCT USED FOR UNKNOWN INDICATION
     Dosage: BID FOR 14 DAYS
     Route: 048
  5. METOCLOPRAMID [Concomitant]
     Dosage: EVERY 8 HOURS
     Route: 048
  6. GABAPENTIN [Concomitant]
     Dosage: TID
     Route: 048
  7. ONDANSETRON [Concomitant]
     Dosage: EVERY 8 HOURS
     Route: 048
  8. CYANOCOBALAMIN [Concomitant]
     Route: 048
  9. ACIDOPHILUS [Concomitant]
     Route: 048
  10. LOMOTIL (UNITED STATES) [Concomitant]
     Route: 048
  11. OMEPRAZOL [Concomitant]
     Route: 048
  12. LEVOTHYROXINE [Concomitant]
     Route: 048
  13. VITAMIN B6 [Concomitant]
     Route: 048
  14. VITAMIN B COMPLEX [Concomitant]
     Route: 048

REACTIONS (12)
  - Small intestinal obstruction [Unknown]
  - Sepsis [Unknown]
  - Pneumonia [Unknown]
  - Diarrhoea [Unknown]
  - Fatigue [Unknown]
  - Dyspnoea [Unknown]
  - Pain [Unknown]
  - Headache [Unknown]
  - Palmar-plantar erythrodysaesthesia syndrome [Unknown]
  - Stomatitis [Unknown]
  - Colitis ulcerative [Unknown]
  - Laboratory test abnormal [Unknown]
